FAERS Safety Report 16828441 (Version 3)
Quarter: 2019Q4

REPORT INFORMATION
  Report Type: Spontaneous
  Country: US (occurrence: US)
  Receive Date: 20190919
  Receipt Date: 20191223
  Transmission Date: 20200122
  Serious: No
  Sender: FDA-Public Use
  Company Number: US-SA-2019SA257191

PATIENT
  Age: 36 Year
  Sex: Male

DRUGS (1)
  1. LANTUS SOLOSTAR [Suspect]
     Active Substance: INSULIN GLARGINE
     Indication: DIABETES MELLITUS
     Dosage: 12 U, BID
     Route: 065

REACTIONS (5)
  - Unevaluable event [Unknown]
  - Inappropriate schedule of product administration [Unknown]
  - Injury associated with device [Unknown]
  - Needle issue [Unknown]
  - Wrong technique in product usage process [Unknown]
